FAERS Safety Report 8845285 (Version 1)
Quarter: 2012Q4

REPORT INFORMATION
  Report Type: Spontaneous
  Country: US (occurrence: None)
  Receive Date: 20121016
  Receipt Date: 20121016
  Transmission Date: 20130627
  Serious: No
  Sender: FDA-Public Use
  Company Number: None

PATIENT
  Age: 79 Year
  Sex: Male
  Weight: 99.7 kg

DRUGS (1)
  1. WARFARIN [Suspect]
     Indication: ATRIAL FLUTTER
     Route: 048
     Dates: start: 20120303

REACTIONS (7)
  - Supraventricular tachycardia [None]
  - Fatigue [None]
  - Coagulopathy [None]
  - International normalised ratio increased [None]
  - Activated partial thromboplastin time prolonged [None]
  - Haemoglobin decreased [None]
  - Vitamin K deficiency [None]
